FAERS Safety Report 8566405 (Version 8)
Quarter: 2013Q2

REPORT INFORMATION
  Report Type: Spontaneous
  Country: IE (occurrence: IE)
  Receive Date: 20120517
  Receipt Date: 20130517
  Transmission Date: 20140414
  Serious: Yes (Life-Threatening, Hospitalization, Other)
  Sender: FDA-Public Use
  Company Number: PHFR2012IE002949

PATIENT
  Age: 45 Year
  Sex: Female

DRUGS (15)
  1. CLOZARIL [Suspect]
     Indication: SCHIZOPHRENIA
     Dosage: UNK
     Route: 048
     Dates: start: 20120302
  2. CLOZARIL [Suspect]
     Dosage: 300 MG, UNK
     Route: 048
     Dates: start: 201205
  3. CLOZARIL [Suspect]
     Dosage: 350 MG, UNK
     Route: 048
  4. PREDNISOLONE [Concomitant]
     Dosage: 35 MG, QD
  5. PREDNISOLONE [Concomitant]
     Dosage: 30 MG, QD
  6. SERETIDE [Concomitant]
     Dosage: 500 MG, QD
  7. OMEPRAZOLE [Concomitant]
     Dosage: 40 MG, QD
  8. LIPITOR [Concomitant]
     Dosage: 20 MG, QD
  9. ERYTHROMYCIN [Concomitant]
     Dosage: UNK
     Dates: start: 201212
  10. NASOCORT [Concomitant]
     Dosage: UNK
  11. SPIRIVA [Concomitant]
     Dosage: 18 MG, QD
  12. INDERAL [Concomitant]
     Dosage: 40 MG, BID
  13. KWELLS [Concomitant]
     Dosage: UNK
  14. NEXIUM [Concomitant]
     Dosage: UNK
  15. CHLORPROMAZINE [Concomitant]
     Dosage: UNK

REACTIONS (8)
  - Pneumonia [Recovered/Resolved]
  - Lung infection [Unknown]
  - Cardiac disorder [Unknown]
  - Chronic obstructive pulmonary disease [Recovering/Resolving]
  - Dyspnoea [Unknown]
  - Urinary tract infection [Unknown]
  - Pollakiuria [Unknown]
  - White blood cell count increased [Not Recovered/Not Resolved]
